FAERS Safety Report 11113397 (Version 1)
Quarter: 2015Q2

REPORT INFORMATION
  Report Type: Spontaneous
  Country: GB (occurrence: GB)
  Receive Date: 20150514
  Receipt Date: 20150514
  Transmission Date: 20150821
  Serious: Yes (Other)
  Sender: FDA-Public Use
  Company Number: GB-JNJFOC-20150213291

PATIENT
  Sex: Male
  Weight: 145 kg

DRUGS (4)
  1. OLYSIO [Suspect]
     Active Substance: SIMEPREVIR
     Indication: HEPATITIS C
     Route: 048
     Dates: start: 20140911
  2. SOVALDI [Suspect]
     Active Substance: SOFOSBUVIR
     Indication: HEPATITIS C
     Route: 065
  3. LESCOL (FLUVASTATIN SODIUM) [Concomitant]
     Indication: HYPERTENSION
     Dosage: TRADE NAME: LESCOL.??TAKEN FOR LONG TIME AS PRETREATMENT AND ALL INTERACTIONS WERE CHECKED AT TIME
  4. EXFORGE [Concomitant]
     Active Substance: AMLODIPINE BESYLATE\VALSARTAN
     Indication: HYPERTENSION
     Dosage: TAKEN FOR A LONG TIME PRETREATMENT AND ALL INTERACTIONS WERE CHECKED AT TIME

REACTIONS (2)
  - Hepatitis C [Unknown]
  - Hepatic cirrhosis [Unknown]

NARRATIVE: CASE EVENT DATE: 20141204
